FAERS Safety Report 9779152 (Version 1)
Quarter: 2013Q4

REPORT INFORMATION
  Report Type: Spontaneous
  Country: IT (occurrence: IT)
  Receive Date: 20131223
  Receipt Date: 20131223
  Transmission Date: 20140711
  Serious: Yes (Hospitalization)
  Sender: FDA-Public Use
  Company Number: IT-MYLANLABS-2013S1028314

PATIENT
  Age: 76 Year
  Sex: Male

DRUGS (2)
  1. METFORMIN [Suspect]
     Indication: TYPE 2 DIABETES MELLITUS
     Route: 065
  2. LEVOFLOXACIN [Suspect]
     Route: 065

REACTIONS (6)
  - Toxicity to various agents [Recovered/Resolved]
  - Dyspnoea [Unknown]
  - Lactic acidosis [Unknown]
  - Hypoglycaemia [Unknown]
  - Tubulointerstitial nephritis [Recovered/Resolved]
  - Nephritis [Recovered/Resolved]
